FAERS Safety Report 8530803 (Version 2)
Quarter: 2013Q2

REPORT INFORMATION
  Report Type: Spontaneous
  Country: GR (occurrence: GR)
  Receive Date: 20120425
  Receipt Date: 20130516
  Transmission Date: 20140414
  Serious: Yes (Hospitalization)
  Sender: FDA-Public Use
  Company Number: PHHY2012GR034288

PATIENT
  Age: 43 Year
  Sex: Male

DRUGS (2)
  1. RIBAVIRIN [Suspect]
     Indication: CHRONIC HEPATITIS C
     Dosage: FOR 32 WEEKS
  2. PEGINTERFERON ALFA-2A [Suspect]
     Indication: CHRONIC HEPATITIS C

REACTIONS (5)
  - Guttate psoriasis [Recovering/Resolving]
  - Pustular psoriasis [Recovering/Resolving]
  - Pyrexia [Recovering/Resolving]
  - Arthritis [Recovering/Resolving]
  - Nail injury [Recovering/Resolving]
